FAERS Safety Report 21006434 (Version 2)
Quarter: 2022Q2

REPORT INFORMATION
  Report Type: Spontaneous
  Country: US (occurrence: US)
  Receive Date: 20220624
  Receipt Date: 20220624
  Transmission Date: 20220721
  Serious: No
  Sender: FDA-Public Use
  Company Number: US-Amarin Pharma, Inc.-2022AMR001005

PATIENT
  Age: 65 Year
  Sex: Female
  Weight: 61.23 kg

DRUGS (8)
  1. VASCEPA [Suspect]
     Active Substance: ICOSAPENT ETHYL
     Indication: Product used for unknown indication
     Route: 048
     Dates: start: 202104
  2. ROSUVASTATIN CALCIUM [Concomitant]
     Active Substance: ROSUVASTATIN CALCIUM
     Indication: Blood cholesterol increased
  3. LISINOPRIL [Concomitant]
     Active Substance: LISINOPRIL
     Indication: Hypertension
  4. IBUPROFEN [Suspect]
     Active Substance: IBUPROFEN
     Indication: Joint injury
     Dosage: SOMETIMES WOULD TAKE 3 DAILY
     Dates: start: 2021, end: 202107
  5. IBUPROFEN [Suspect]
     Active Substance: IBUPROFEN
     Indication: Ligament sprain
  6. IBUPROFEN [Suspect]
     Active Substance: IBUPROFEN
     Indication: Joint injury
  7. IBUPROFEN [Suspect]
     Active Substance: IBUPROFEN
     Indication: Limb injury
  8. METOPROLOL SUCCINATE [Concomitant]
     Active Substance: METOPROLOL SUCCINATE
     Indication: Hypertension

REACTIONS (7)
  - Disturbance in attention [Not Recovered/Not Resolved]
  - Osteochondrosis [Not Recovered/Not Resolved]
  - Incontinence [Recovering/Resolving]
  - Type 2 diabetes mellitus [Not Recovered/Not Resolved]
  - Intentional underdose [Recovered/Resolved]
  - Product storage error [Unknown]
  - Pain in extremity [Unknown]

NARRATIVE: CASE EVENT DATE: 20210701
